FAERS Safety Report 10468955 (Version 2)
Quarter: 2014Q3

REPORT INFORMATION
  Report Type: Spontaneous
  Country: FR (occurrence: FR)
  Receive Date: 20140923
  Receipt Date: 20140923
  Transmission Date: 20150326
  Serious: Yes (Life-Threatening)
  Sender: FDA-Public Use
  Company Number: FR-MERCK-1408FRA002993

PATIENT
  Age: 37 Year
  Sex: Female

DRUGS (13)
  1. TRUVADA [Suspect]
     Active Substance: EMTRICITABINE\TENOFOVIR DISOPROXIL FUMARATE
     Indication: HIV INFECTION
     Dosage: ONE TABLET DAILY (ONE IN THE EVENING)/ 1 DOSAGE FORM 1 DAY
     Route: 048
     Dates: start: 20090503, end: 20090517
  2. ETHAMBUTOL [Suspect]
     Active Substance: ETHAMBUTOL HYDROCHLORIDE
     Indication: DISSEMINATED TUBERCULOSIS
     Dosage: 400 MG 3 TABLETS DAILY (3 IN THE MORNING) (ALSO REPORTED AS 400 MILLIGRAM 3/1 DAY)
     Dates: start: 20090423, end: 20090517
  3. PILINENE (PYRAZINAMIDE) [Suspect]
     Active Substance: PYRAZINAMIDE
     Indication: DISSEMINATED TUBERCULOSIS
     Dosage: 500 MG 3 TABLETS DAILY (3 IN THE MORNING)
     Route: 048
     Dates: start: 20090423, end: 20090517
  4. IMOVANE [Suspect]
     Active Substance: ZOPICLONE
     Indication: INSOMNIA
     Dosage: 7.5 MG ONE TABLET DAILY (1 IN THE EVENING)
     Dates: start: 20090427, end: 20090516
  5. SUSTIVA [Suspect]
     Active Substance: EFAVIRENZ
     Indication: HIV INFECTION
     Dosage: ONE TABLET DAILY (ONE IN THE EVENING)/ 1 DOSAGE FORM 1 DAY
     Route: 048
     Dates: start: 20090503, end: 20090516
  6. ZECLAR [Concomitant]
     Active Substance: CLARITHROMYCIN
  7. SINGULAIR [Suspect]
     Active Substance: MONTELUKAST SODIUM
     Indication: IMMUNE RECONSTITUTION INFLAMMATORY SYNDROME
     Dosage: 10 MILLIGRAM 1 DAY
     Route: 048
     Dates: start: 20090511, end: 20090516
  8. FUZEON [Suspect]
     Active Substance: ENFUVIRTIDE
     Indication: HIV INFECTION
     Dosage: 90 MG/ML DAILY (ONE IN THE MORNING AND ONE IN THE EVENING) (ALSO REPORTED AS 90 MILLIGRAM 1 DAY))
     Route: 058
     Dates: start: 20090503, end: 20090517
  9. RIFAMPIN. [Suspect]
     Active Substance: RIFAMPIN
     Indication: DISSEMINATED TUBERCULOSIS
     Dosage: 300 MG 2 CAPSULES DAILY/ 300 MILLIGRAM 2/1 DAY
     Route: 048
     Dates: start: 20090505, end: 20090517
  10. BACTRIM [Suspect]
     Active Substance: SULFAMETHOXAZOLE\TRIMETHOPRIM
     Indication: PROPHYLAXIS
     Dosage: ONE TABLET DAILY/1 DOSAGE FORM 1 DAY
     Route: 048
     Dates: start: 20090425, end: 20090518
  11. ANSATIPINE [Concomitant]
     Active Substance: RIFABUTIN
     Dosage: UNK
     Dates: end: 20090503
  12. TRUVADA [Suspect]
     Active Substance: EMTRICITABINE\TENOFOVIR DISOPROXIL FUMARATE
     Dosage: UNK
     Route: 048
  13. RIMIFON [Suspect]
     Active Substance: ISONIAZID
     Indication: DISSEMINATED TUBERCULOSIS
     Dosage: 150 MG ONCE DAILY
     Dates: start: 20090425, end: 20090517

REACTIONS (1)
  - Hepatitis fulminant [Recovering/Resolving]

NARRATIVE: CASE EVENT DATE: 20090515
